FAERS Safety Report 4452824-2 (Version None)
Quarter: 2004Q3

REPORT INFORMATION
  Report Type: 
  Country: None (occurrence: None)
  Receive Date: 20040813
  Receipt Date: 20040426
  Transmission Date: 20050211
  Serious: No
  Sender: FDA-Public Use
  Company Number: S04-USA-03245-01

PATIENT
  Age: 83 Year
  Sex: Female

DRUGS (20)
  1. NAMENDA [Suspect]
     Indication: DEMENTIA
     Dosage: 10 MG BID PO
     Route: 048
     Dates: start: 20040420, end: 20040425
  2. NAMENDA [Suspect]
     Indication: HYPOXIA
     Dosage: 10 MG BID PO
     Route: 048
     Dates: start: 20040420, end: 20040425
  3. NAMENDA [Suspect]
     Indication: NERVOUS SYSTEM SURGERY
     Dosage: 10 MG BID PO
     Route: 048
     Dates: start: 20040420, end: 20040425
  4. NAMENDA [Suspect]
     Indication: DEMENTIA
     Dosage: 5 MG QD PO
     Route: 048
     Dates: start: 20040330, end: 20040405
  5. NAMENDA [Suspect]
     Indication: HYPOXIA
     Dosage: 5 MG QD PO
     Route: 048
     Dates: start: 20040330, end: 20040405
  6. NAMENDA [Suspect]
     Indication: NERVOUS SYSTEM SURGERY
     Dosage: 5 MG QD PO
     Route: 048
     Dates: start: 20040330, end: 20040405
  7. NAMENDA [Suspect]
     Indication: DEMENTIA
     Dosage: 10 MG QD PO
     Route: 048
     Dates: start: 20040406, end: 20040412
  8. NAMENDA [Suspect]
     Indication: HYPOXIA
     Dosage: 10 MG QD PO
     Route: 048
     Dates: start: 20040406, end: 20040412
  9. NAMENDA [Suspect]
     Indication: NERVOUS SYSTEM SURGERY
     Dosage: 10 MG QD PO
     Route: 048
     Dates: start: 20040406, end: 20040412
  10. NAMENDA [Suspect]
     Indication: DEMENTIA
     Dosage: 15 MG QD PO
     Route: 048
     Dates: start: 20040413, end: 20040419
  11. NAMENDA [Suspect]
     Indication: HYPOXIA
     Dosage: 15 MG QD PO
     Route: 048
     Dates: start: 20040413, end: 20040419
  12. NAMENDA [Suspect]
     Indication: NERVOUS SYSTEM SURGERY
     Dosage: 15 MG QD PO
     Route: 048
     Dates: start: 20040413, end: 20040419
  13. XANAX [Concomitant]
  14. SEROQUEL [Concomitant]
  15. TRAZODONE [Concomitant]
  16. ZOLOFT [Concomitant]
  17. ARICEPT [Concomitant]
  18. IMDUR [Concomitant]
  19. MICRONASE [Concomitant]
  20. ASPIRIN [Concomitant]

REACTIONS (2)
  - LOSS OF CONSCIOUSNESS [None]
  - SOMNOLENCE [None]
